FAERS Safety Report 6111976-9 (Version None)
Quarter: 2009Q1

REPORT INFORMATION
  Report Type: 
  Country: None (occurrence: None)
  Receive Date: 20090310
  Receipt Date: 20090225
  Transmission Date: 20090719
  Serious: No
  Sender: FDA-Public Use
  Company Number: 2009-192218-NL

PATIENT
  Age: 33 Year
  Sex: Male

DRUGS (3)
  1. VECURONIUM BROMIDE [Suspect]
     Indication: ANAESTHESIA
     Dosage: 10 MG ONCE INTRAVENOUS BOLUS
     Route: 040
     Dates: start: 20081201, end: 20081201
  2. THIOPENTAL SODIUM [Suspect]
     Dosage: 500 MG ONCE/100 MG ONCE INTRAVENOUS BOLUS
     Route: 040
     Dates: start: 20081201, end: 20081201
  3. THIOPENTAL SODIUM [Suspect]
     Dosage: 500 MG ONCE/100 MG ONCE INTRAVENOUS BOLUS
     Route: 040
     Dates: start: 20081201, end: 20081201

REACTIONS (4)
  - ANAPHYLACTIC REACTION [None]
  - BRONCHOSPASM [None]
  - ERYTHEMA [None]
  - URTICARIA [None]
